FAERS Safety Report 20752310 (Version 2)
Quarter: 2022Q2

REPORT INFORMATION
  Report Type: Report from Study
  Country: US (occurrence: None)
  Receive Date: 20220426
  Receipt Date: 20220429
  Transmission Date: 20220720
  Serious: Yes (Other)
  Sender: FDA-Public Use
  Company Number: US-ROCHE-2779986

PATIENT
  Age: 79 Year
  Sex: Male
  Weight: 113.4 kg

DRUGS (31)
  1. RANIBIZUMAB [Suspect]
     Active Substance: RANIBIZUMAB
     Indication: Neovascular age-related macular degeneration
     Dosage: FIRST DOSE ADMINISTERED: 100 MG/ML?STUDY DRUG FREQUENCY: EVERY 24 WEEKS?ON 11/SEP/2020, HE RECEIVED
     Route: 065
     Dates: start: 20190423
  2. RANIBIZUMAB [Suspect]
     Active Substance: RANIBIZUMAB
  3. RANIBIZUMAB [Suspect]
     Active Substance: RANIBIZUMAB
  4. RANIBIZUMAB [Suspect]
     Active Substance: RANIBIZUMAB
  5. RANIBIZUMAB [Suspect]
     Active Substance: RANIBIZUMAB
  6. ALLOPURINOL [Concomitant]
     Active Substance: ALLOPURINOL
     Indication: Gout
     Route: 048
  7. AMLODIPINE BESYLATE [Concomitant]
     Active Substance: AMLODIPINE BESYLATE
     Indication: Hypertension
     Route: 048
     Dates: start: 20121226
  8. CALCIUM CARBONATE [Concomitant]
     Active Substance: CALCIUM CARBONATE
     Route: 048
  9. COLCHICINE [Concomitant]
     Active Substance: COLCHICINE
     Indication: Gout
     Route: 048
     Dates: start: 20120215
  10. DOCUSATE [Concomitant]
     Active Substance: DOCUSATE
     Indication: Constipation
     Route: 048
  11. ZOLPIDEM [Concomitant]
     Active Substance: ZOLPIDEM TARTRATE
     Route: 048
  12. FOLIC ACID [Concomitant]
     Active Substance: FOLIC ACID
     Route: 048
  13. GABAPENTIN [Concomitant]
     Active Substance: GABAPENTIN
     Indication: Back pain
     Route: 048
     Dates: start: 20130603
  14. LISINOPRIL [Concomitant]
     Active Substance: LISINOPRIL
     Indication: Hypertension
     Route: 048
     Dates: start: 20031222
  15. OMEPRAZOLE [Concomitant]
     Active Substance: OMEPRAZOLE
     Indication: Gastrooesophageal reflux disease
     Route: 048
     Dates: start: 2009
  16. MINERALS\VITAMINS [Concomitant]
     Active Substance: MINERALS\VITAMINS
     Indication: Macular degeneration
     Route: 048
     Dates: start: 20170306
  17. SENNOSIDES [Concomitant]
     Active Substance: SENNOSIDES
     Indication: Constipation
     Route: 048
  18. SIMVASTATIN [Concomitant]
     Active Substance: SIMVASTATIN
     Indication: Blood cholesterol increased
     Route: 048
     Dates: start: 1999
  19. TAMSULOSIN [Concomitant]
     Active Substance: TAMSULOSIN
     Indication: Prostatomegaly
     Route: 048
     Dates: start: 20180122
  20. THIAMINE [Concomitant]
     Active Substance: THIAMINE
     Route: 048
  21. METHYLPREDNISOLONE [Concomitant]
     Active Substance: METHYLPREDNISOLONE
     Indication: Nerve compression
     Route: 048
  22. ERYTHROMYCIN [Concomitant]
     Active Substance: ERYTHROMYCIN
     Dosage: 5 MG/GRAM (0.5 %)
     Route: 047
     Dates: start: 20201218
  23. ERYTHROMYCIN [Concomitant]
     Active Substance: ERYTHROMYCIN
     Route: 047
     Dates: start: 20210309, end: 20210316
  24. ATROPINE [Concomitant]
     Active Substance: ATROPINE
     Route: 047
     Dates: start: 20210309, end: 20210316
  25. PREDNISOLONE ACETATE [Concomitant]
     Active Substance: PREDNISOLONE ACETATE
     Route: 047
     Dates: start: 20210309, end: 20210316
  26. ROSUVASTATIN CALCIUM [Concomitant]
     Active Substance: ROSUVASTATIN CALCIUM
     Indication: Blood cholesterol increased
     Route: 048
     Dates: start: 20210411
  27. POLYMYXIN B [Concomitant]
     Active Substance: POLYMYXIN B
     Dosage: POST OPERATIVE CARE
     Route: 048
     Dates: start: 20210526
  28. DEXAMETHASONE;NEOMYCIN SULFATE;POLYMYXIN B SULFATE [Concomitant]
     Dosage: POST OPERATIVE CARE
     Route: 047
     Dates: start: 20210527
  29. RANIBIZUMAB [Concomitant]
     Active Substance: RANIBIZUMAB
     Indication: Neovascular age-related macular degeneration
     Dosage: FELLOW EYE TREATMENT?FIRST DOSE ADMINISTERED: 0.5 MG/0.05 ML?ON 01/FEB/2021, 11/MAR/2021 AND 15/APR/
     Route: 050
     Dates: start: 20190502
  30. RANIBIZUMAB [Concomitant]
     Active Substance: RANIBIZUMAB
     Dosage: ON 15/APR/2021, HE RECEIVED MOST RECENT DOSE OF INTRAVITREAL RANIBIZUMAB (10 MG/ML) PRIOR TO AE ONSE
     Route: 050
     Dates: start: 20210311
  31. LUCENTIS [Concomitant]
     Active Substance: RANIBIZUMAB
     Indication: Macular degeneration
     Route: 050
     Dates: start: 20220322, end: 20220322

REACTIONS (2)
  - Conjunctival retraction [Recovered/Resolved]
  - Conjunctival erosion [Recovered/Resolved]

NARRATIVE: CASE EVENT DATE: 20210225
